FAERS Safety Report 8891990 (Version 1)
Quarter: 2012Q4

REPORT INFORMATION
  Report Type: Spontaneous
  Country: US (occurrence: None)
  Receive Date: 20121105
  Receipt Date: 20121105
  Transmission Date: 20130627
  Serious: Yes (Disabling)
  Sender: FDA-Public Use
  Company Number: None

PATIENT
  Age: 52 Year
  Sex: Female
  Weight: 68.04 kg

DRUGS (1)
  1. LEVOFLOXACIN [Suspect]
     Indication: SINUS INFECTION
     Dosage: 500MG Q24 po
     Route: 048
     Dates: start: 20121018, end: 20121026

REACTIONS (9)
  - Muscular weakness [None]
  - Fatigue [None]
  - Night sweats [None]
  - Insomnia [None]
  - Agitation [None]
  - Depression [None]
  - Feeling jittery [None]
  - Feeling abnormal [None]
  - Tendon pain [None]
